FAERS Safety Report 7654003-4 (Version None)
Quarter: 2011Q3

REPORT INFORMATION
  Report Type: 
  Country: None (occurrence: None)
  Receive Date: 20110803
  Receipt Date: 20110720
  Transmission Date: 20111222
  Serious: Yes (Other)
  Sender: FDA-Public Use
  Company Number: PHHY2011BR66082

PATIENT
  Sex: Female

DRUGS (2)
  1. RASILEZ HCT [Suspect]
     Indication: HYPERTENSION
     Dosage: 300/12.5 MG
  2. DIOVAN [Suspect]
     Indication: HYPERTENSION
     Dosage: 320 MG, UNK

REACTIONS (9)
  - DIABETIC NEUROPATHY [None]
  - THYROID DISORDER [None]
  - DIABETIC RETINOPATHY [None]
  - HYPOTHYROIDISM [None]
  - RENAL DISORDER [None]
  - VISUAL IMPAIRMENT [None]
  - DIABETES MELLITUS [None]
  - BLOOD CHOLESTEROL ABNORMAL [None]
  - HYPERTENSION [None]
